FAERS Safety Report 5072763-6 (Version None)
Quarter: 2006Q3

REPORT INFORMATION
  Report Type: 
  Country: None (occurrence: None)
  Receive Date: 20060807
  Receipt Date: 20060727
  Transmission Date: 20061208
  Serious: Yes (Other)
  Sender: FDA-Public Use
  Company Number: PHBS2006GB11283

PATIENT
  Age: 22 Year
  Sex: Female

DRUGS (3)
  1. CYCLOSPORINE [Suspect]
     Indication: HEART AND LUNG TRANSPLANT
     Route: 065
  2. AZATHIOPRINE [Suspect]
     Indication: HEART AND LUNG TRANSPLANT
     Route: 065
  3. PREDNISOLONE [Suspect]
     Indication: HEART AND LUNG TRANSPLANT

REACTIONS (10)
  - BRONCHIECTASIS [None]
  - DRUG EXPOSURE DURING PREGNANCY [None]
  - DRUG LEVEL BELOW THERAPEUTIC [None]
  - LOWER RESPIRATORY TRACT INFECTION [None]
  - NORMAL NEWBORN [None]
  - PREGNANCY [None]
  - PULMONARY FUNCTION TEST DECREASED [None]
  - RESPIRATORY DISORDER [None]
  - RESPIRATORY GAS EXCHANGE DISORDER [None]
  - STENOTROPHOMONAS INFECTION [None]
